FAERS Safety Report 21282860 (Version 1)
Quarter: 2022Q3

REPORT INFORMATION
  Report Type: Spontaneous
  Country: DE (occurrence: DE)
  Receive Date: 20220901
  Receipt Date: 20220901
  Transmission Date: 20221026
  Serious: Yes (Other)
  Sender: FDA-Public Use
  Company Number: DE-ORGANON-O2208DEU001857

PATIENT
  Sex: Female

DRUGS (3)
  1. LOSARTAN [Suspect]
     Active Substance: LOSARTAN
     Dosage: UNK
     Route: 048
     Dates: end: 2022
  2. LOSARTAN [Suspect]
     Active Substance: LOSARTAN
     Dosage: UNK (HALVED THE LORZAAR PROTECT 50 MG)
     Route: 048
     Dates: start: 2022
  3. LOSARTAN POTASSIUM [Suspect]
     Active Substance: LOSARTAN POTASSIUM
     Dosage: UNK

REACTIONS (9)
  - Ventricular fibrillation [Recovered/Resolved]
  - Ventricular fibrillation [Recovered/Resolved]
  - Ventricular fibrillation [Unknown]
  - Arrhythmia [Recovered/Resolved]
  - Arrhythmia [Recovered/Resolved]
  - Arrhythmia [Unknown]
  - Hypertension [Unknown]
  - Wrong technique in product usage process [Unknown]
  - Intentional product misuse [Unknown]

NARRATIVE: CASE EVENT DATE: 20200101
